FAERS Safety Report 24245806 (Version 2)
Quarter: 2025Q1

REPORT INFORMATION
  Report Type: Spontaneous
  Country: US (occurrence: US)
  Receive Date: 20240824
  Receipt Date: 20250208
  Transmission Date: 20250408
  Serious: No
  Sender: ALEXION PHARMACEUTICALS
  Company Number: 2024A190431

PATIENT

DRUGS (3)
  1. BUDESONIDE\FORMOTEROL FUMARATE [Suspect]
     Active Substance: BUDESONIDE\FORMOTEROL FUMARATE
     Indication: Bronchitis
  2. BUDESONIDE\FORMOTEROL FUMARATE [Suspect]
     Active Substance: BUDESONIDE\FORMOTEROL FUMARATE
     Indication: Asthma
  3. BUDESONIDE\FORMOTEROL FUMARATE [Suspect]
     Active Substance: BUDESONIDE\FORMOTEROL FUMARATE
     Indication: Chronic obstructive pulmonary disease

REACTIONS (6)
  - Cough [Unknown]
  - Device malfunction [Unknown]
  - Device delivery system issue [Unknown]
  - Device difficult to use [Unknown]
  - Device use issue [Unknown]
  - Wrong technique in product usage process [Unknown]
